FAERS Safety Report 5023128-4 (Version None)
Quarter: 2006Q2

REPORT INFORMATION
  Report Type: 
  Country: None (occurrence: None)
  Receive Date: 20060612
  Receipt Date: 20060531
  Transmission Date: 20061013
  Serious: Yes (Other)
  Sender: FDA-Public Use
  Company Number: GBWYE673531MAY06

PATIENT
  Sex: Female

DRUGS (3)
  1. ENBREL [Suspect]
     Indication: DRUG USE FOR UNKNOWN INDICATION
     Route: 058
     Dates: end: 20060501
  2. ENBREL [Suspect]
     Route: 058
     Dates: start: 20060501
  3. METHOTREXATE [Concomitant]
     Route: 065

REACTIONS (1)
  - MIGRAINE [None]
